FAERS Safety Report 4971349-9 (Version None)
Quarter: 2006Q2

REPORT INFORMATION
  Report Type: 
  Country: None (occurrence: None)
  Receive Date: 20060413
  Receipt Date: 20060403
  Transmission Date: 20061013
  Serious: Yes (Hospitalization)
  Sender: FDA-Public Use
  Company Number: 2006AP01615

PATIENT
  Age: 34 Year
  Sex: Female
  Weight: 46.4 kg

DRUGS (5)
  1. ACCOLATE [Suspect]
     Indication: ASTHMA
     Route: 048
     Dates: start: 20060329, end: 20060329
  2. RESTAS [Suspect]
     Indication: DEPRESSION
     Route: 048
     Dates: start: 20060329, end: 20060329
  3. PAXIL [Suspect]
     Indication: DEPRESSION
     Route: 048
     Dates: start: 20060329, end: 20060329
  4. DEPAS [Suspect]
     Indication: DEPRESSION
     Route: 048
     Dates: start: 20060329, end: 20060329
  5. DOGMATYL [Suspect]
     Indication: DEPRESSION
     Route: 048
     Dates: start: 20060329, end: 20060329

REACTIONS (2)
  - SUICIDE ATTEMPT [None]
  - VOMITING [None]
